FAERS Safety Report 10540290 (Version 6)
Quarter: 2015Q2

REPORT INFORMATION
  Report Type: Spontaneous
  Country: US (occurrence: US)
  Receive Date: 20141024
  Receipt Date: 20150416
  Transmission Date: 20150821
  Serious: Yes (Hospitalization)
  Sender: FDA-Public Use
  Company Number: US-PFIZER INC-2014284382

PATIENT
  Age: 58 Year
  Sex: Female
  Weight: 93.42 kg

DRUGS (6)
  1. CLARITIN [Concomitant]
     Active Substance: LORATADINE
     Dosage: UNK
  2. XANAX [Concomitant]
     Active Substance: ALPRAZOLAM
     Dosage: UNK
  3. INSULIN [Concomitant]
     Active Substance: INSULIN NOS
     Dosage: UNK
  4. SUTENT [Suspect]
     Active Substance: SUNITINIB MALATE
     Indication: METASTATIC RENAL CELL CARCINOMA
     Dosage: 50 MG, 1X/DAY
     Route: 048
     Dates: start: 20141018, end: 20150130
  5. PROZAC [Concomitant]
     Active Substance: FLUOXETINE HYDROCHLORIDE
     Dosage: UNK
  6. HYDROCHLOROTHIAZIDE/LISINOPRIL [Concomitant]
     Dosage: UNK

REACTIONS (14)
  - Fungal infection [Unknown]
  - Muscle spasms [Unknown]
  - Dry mouth [Recovered/Resolved]
  - Hypersensitivity [Unknown]
  - Stomatitis [Recovered/Resolved]
  - Oral pain [Unknown]
  - Dysgeusia [Unknown]
  - Glossodynia [Unknown]
  - Influenza [Unknown]
  - Fatigue [Unknown]
  - Proctalgia [Unknown]
  - Weight decreased [Unknown]
  - Tongue ulceration [Unknown]
  - Decreased appetite [Unknown]

NARRATIVE: CASE EVENT DATE: 2014
